FAERS Safety Report 6986299 (Version 2)
Quarter: 2014Q2

REPORT INFORMATION
  Report Type: Spontaneous
  Country: US (occurrence: US)
  Receive Date: 20090504
  Receipt Date: 20140410
  Transmission Date: 20141212
  Serious: Yes (Hospitalization, Other)
  Sender: FDA-Public Use
  Company Number: US-ALEXION-A200900184

PATIENT
  Age: 65 Year
  Sex: 0

DRUGS (9)
  1. SOLIRIS [Suspect]
     Indication: PAROXYSMAL NOCTURNAL HAEMOGLOBINURIA
     Dosage: 600 MG, SINGLE
     Route: 042
     Dates: start: 20090126, end: 20090126
  2. LIPITOR [Concomitant]
     Indication: CARDIAC DISORDER
     Dosage: 40 MG, QD
     Route: 048
  3. FOLIC ACID [Concomitant]
     Indication: PAROXYSMAL NOCTURNAL HAEMOGLOBINURIA
     Dosage: 1 MG, QD
     Route: 048
  4. LASIX                              /00032601/ [Concomitant]
     Indication: CARDIAC DISORDER
     Dosage: 20 MG, QD
     Route: 048
  5. IRON [Concomitant]
     Indication: PAROXYSMAL NOCTURNAL HAEMOGLOBINURIA
     Dosage: 325 MG, QD
     Route: 048
  6. TOPROL XL [Concomitant]
     Indication: HYPERTENSION
     Dosage: 50 MG, QD
     Route: 048
  7. ALTACE [Concomitant]
     Indication: CARDIAC DISORDER
     Dosage: 2.5 MG, QD
     Route: 048
  8. AMBIEN CR [Concomitant]
     Indication: INSOMNIA
     Dosage: 10 MG, QD
     Route: 048
  9. COUMADIN                           /00014802/ [Concomitant]
     Indication: ANTICOAGULANT THERAPY
     Route: 065

REACTIONS (11)
  - Haemolysis [Unknown]
  - Haemoglobinuria [Recovered/Resolved]
  - Jaundice acholuric [Unknown]
  - Blood pressure increased [Unknown]
  - Haemoglobin decreased [Unknown]
  - Haematochezia [Recovered/Resolved]
  - Abdominal pain [Recovered/Resolved]
  - Precancerous skin lesion [Unknown]
  - International normalised ratio abnormal [Unknown]
  - Localised infection [Unknown]
  - Diarrhoea [Recovered/Resolved]
